FAERS Safety Report 18495165 (Version 1)
Quarter: 2020Q4

REPORT INFORMATION
  Report Type: Spontaneous
  Country: US (occurrence: US)
  Receive Date: 20201112
  Receipt Date: 20201112
  Transmission Date: 20210114
  Serious: Yes (Death)
  Sender: FDA-Public Use
  Company Number: US-BIO PRODUCTS LABORATORY LTD-2095851

PATIENT

DRUGS (1)
  1. COAGADEX [Suspect]
     Active Substance: COAGULATION FACTOR X HUMAN
     Route: 042

REACTIONS (1)
  - Death [Fatal]
